FAERS Safety Report 9458508 (Version 7)
Quarter: 2014Q2

REPORT INFORMATION
  Report Type: Spontaneous
  Country: US (occurrence: US)
  Receive Date: 20130814
  Receipt Date: 20140514
  Transmission Date: 20141212
  Serious: Yes (Hospitalization, Other)
  Sender: FDA-Public Use
  Company Number: US-BAXTER-2013BAX031479

PATIENT
  Age: 53 Year
  Sex: Male

DRUGS (2)
  1. DIANEAL LOW CALCIUM [Suspect]
     Indication: PERITONEAL DIALYSIS
     Route: 033
     Dates: start: 2012
  2. DIANEAL LOW CALCIUM (ULTRABAG) [Suspect]
     Indication: PERITONEAL DIALYSIS
     Route: 033
     Dates: start: 2012

REACTIONS (8)
  - Myocardial infarction [Recovered/Resolved]
  - Coronary artery occlusion [Unknown]
  - Vascular insufficiency [Recovering/Resolving]
  - Localised infection [Recovering/Resolving]
  - Peripheral swelling [Recovering/Resolving]
  - Gangrene [Recovered/Resolved]
  - Heart rate decreased [Unknown]
  - Hypotension [Unknown]
